FAERS Safety Report 6395234-3 (Version None)
Quarter: 2009Q4

REPORT INFORMATION
  Report Type: 
  Country: None (occurrence: None)
  Receive Date: 20091009
  Receipt Date: 20090929
  Transmission Date: 20100525
  Serious: Yes (Hospitalization)
  Sender: FDA-Public Use
  Company Number: US-ELI_LILLY_AND_COMPANY-US200908005024

PATIENT
  Sex: Male

DRUGS (16)
  1. HUMALOG [Suspect]
     Indication: TYPE 2 DIABETES MELLITUS
     Dosage: 6 U, 3/D
     Dates: start: 20081201
  2. LANTUS [Concomitant]
     Indication: TYPE 2 DIABETES MELLITUS
  3. AMARYL [Concomitant]
     Indication: TYPE 2 DIABETES MELLITUS
  4. DARVOCET-N 100 [Concomitant]
     Indication: PAIN
  5. PROZAC [Concomitant]
  6. MUCINEX [Concomitant]
  7. METOPROLOL SUCCINATE [Concomitant]
  8. HYDROCODONE [Concomitant]
     Indication: PAIN
  9. PROTONIX [Concomitant]
  10. ACIDOPHILUS [Concomitant]
  11. SYNTHROID [Concomitant]
  12. LASIX [Concomitant]
  13. COUMADIN [Concomitant]
  14. UROXATRAL [Concomitant]
  15. VYTORIN [Concomitant]
  16. INSULIN [Concomitant]
     Dates: start: 20080501

REACTIONS (6)
  - ACETABULUM FRACTURE [None]
  - BLOOD GLUCOSE INCREASED [None]
  - RIB FRACTURE [None]
  - ROAD TRAFFIC ACCIDENT [None]
  - SCAPULA FRACTURE [None]
  - SPINAL COMPRESSION FRACTURE [None]
